APPROVED DRUG PRODUCT: SELEXIPAG
Active Ingredient: SELEXIPAG
Strength: 1.2MG
Dosage Form/Route: TABLET;ORAL
Application: A214302 | Product #006
Applicant: ZYDUS LIFESCIENCES GLOBAL FZE
Approved: Dec 21, 2022 | RLD: No | RS: No | Type: DISCN